FAERS Safety Report 5018682-2 (Version None)
Quarter: 2006Q2

REPORT INFORMATION
  Report Type: 
  Country: None (occurrence: None)
  Receive Date: 20060530
  Receipt Date: 20060519
  Transmission Date: 20061013
  Serious: Yes (Death, Life-Threatening, Hospitalization)
  Sender: FDA-Public Use
  Company Number: 220122

PATIENT
  Age: 71 Year
  Sex: Female

DRUGS (11)
  1. RITUXAN [Suspect]
     Indication: MANTLE CELL LYMPHOMA
     Dosage: 375 MG/M2, Q28D, INTRAVENOUS
     Route: 042
     Dates: start: 20040927, end: 20050317
  2. FLUDARABINE [Suspect]
     Indication: MANTLE CELL LYMPHOMA
     Dosage: 25 MG/M2, Q28D, INTRAVENOUS
     Route: 042
     Dates: start: 20040927, end: 20050311
  3. NORVASC [Concomitant]
  4. ATENOLOL [Concomitant]
  5. MULTIVITAMIN (MULTIVITAMINS NOS) [Concomitant]
  6. GLUCOSAMINE (GLUCOSAMINE) [Concomitant]
  7. FOLIC ACID [Concomitant]
  8. PREDNISONE TAB [Concomitant]
  9. ACYCLOVIR [Concomitant]
  10. BACTRIM [Concomitant]
  11. TPN (HYPERALIMENTATION) [Concomitant]

REACTIONS (39)
  - APLASTIC ANAEMIA [None]
  - BACTERAEMIA [None]
  - BILIRUBIN URINE [None]
  - BLOOD ALKALINE PHOSPHATASE INCREASED [None]
  - BLOOD URINE PRESENT [None]
  - BONE MARROW FAILURE [None]
  - CATHETER RELATED COMPLICATION [None]
  - COLD AGGLUTININS POSITIVE [None]
  - CSF CULTURE POSITIVE [None]
  - CULTURE URINE POSITIVE [None]
  - DILATATION VENTRICULAR [None]
  - DRUG TOXICITY [None]
  - GLUCOSE URINE [None]
  - HAEMORRHAGE [None]
  - HYPERSENSITIVITY [None]
  - HYPERTHERMIA [None]
  - HYPOTENSION [None]
  - JC VIRUS INFECTION [None]
  - LOSS OF CONSCIOUSNESS [None]
  - LUNG NEOPLASM [None]
  - LYMPHADENOPATHY [None]
  - MENTAL STATUS CHANGES [None]
  - METABOLIC DISORDER [None]
  - NAUSEA [None]
  - OESOPHAGEAL CANDIDIASIS [None]
  - PANCYTOPENIA [None]
  - PATHOGEN RESISTANCE [None]
  - PROTEIN URINE [None]
  - PULMONARY EMBOLISM [None]
  - RESPIRATORY ALKALOSIS [None]
  - SEPSIS [None]
  - SOMNOLENCE [None]
  - STAPHYLOCOCCAL INFECTION [None]
  - STREPTOCOCCAL INFECTION [None]
  - THROMBOSIS [None]
  - UNRESPONSIVE TO PAIN STIMULI [None]
  - UNRESPONSIVE TO VERBAL STIMULI [None]
  - UROSEPSIS [None]
  - VOMITING [None]
